FAERS Safety Report 16020746 (Version 1)
Quarter: 2019Q1

REPORT INFORMATION
  Report Type: Spontaneous
  Country: FR (occurrence: FR)
  Receive Date: 20190301
  Receipt Date: 20190301
  Transmission Date: 20190418
  Serious: Yes (Hospitalization)
  Sender: FDA-Public Use
  Company Number: FR-ACCORD-109687

PATIENT
  Age: 70 Year
  Sex: Male

DRUGS (3)
  1. PRAVASTATINE ACCORD [Suspect]
     Active Substance: PRAVASTATIN SODIUM
     Indication: DYSLIPIDAEMIA
     Dosage: 20 MG AT NIGHT
     Route: 048
     Dates: start: 201708
  2. PREVISCAN (FLUINDIONE) [Interacting]
     Active Substance: FLUINDIONE
     Indication: ARRHYTHMIA
     Dosage: 5 MG IN THE EVENING
     Route: 048
     Dates: start: 2011, end: 20180126
  3. CORDARONE [Interacting]
     Active Substance: AMIODARONE HYDROCHLORIDE
     Indication: ARRHYTHMIA
     Dosage: 200 MG EVERY MONDAY, TUESDAYS, WEDNESDAYS, THURSDAYS, FRIDAYS
     Route: 048
     Dates: start: 201708

REACTIONS (4)
  - Drug interaction [Unknown]
  - Haemorrhagic anaemia [Recovered/Resolved]
  - Muscle haemorrhage [Recovered/Resolved]
  - International normalised ratio increased [Recovered/Resolved]

NARRATIVE: CASE EVENT DATE: 20180124
